FAERS Safety Report 19297924 (Version 1)
Quarter: 2021Q2

REPORT INFORMATION
  Report Type: Report from Study
  Country: None (occurrence: US)
  Receive Date: 20210525
  Receipt Date: 20210525
  Transmission Date: 20210717
  Serious: Yes (Other)
  Sender: FDA-Public Use
  Company Number: US-ABBVIE-21K-163-3915361-00

PATIENT
  Sex: Male

DRUGS (1)
  1. HUMIRA [Suspect]
     Active Substance: ADALIMUMAB
     Indication: CROHN^S DISEASE
     Route: 058

REACTIONS (8)
  - Swelling [Not Recovered/Not Resolved]
  - Ankylosing spondylitis [Unknown]
  - Crohn^s disease [Unknown]
  - Histoplasmosis [Recovered/Resolved]
  - Peripheral swelling [Not Recovered/Not Resolved]
  - Splenic rupture [Unknown]
  - Road traffic accident [Unknown]
  - Pain [Not Recovered/Not Resolved]

NARRATIVE: CASE EVENT DATE: 2021
